FAERS Safety Report 18442343 (Version 1)
Quarter: 2020Q4

REPORT INFORMATION
  Report Type: Spontaneous
  Country: HU (occurrence: HU)
  Receive Date: 20201029
  Receipt Date: 20201029
  Transmission Date: 20210114
  Serious: Yes (Other)
  Sender: FDA-Public Use
  Company Number: NVSC2020HU288912

PATIENT
  Age: 41 Year
  Sex: Male
  Weight: 45 kg

DRUGS (1)
  1. TACROLIMUS. [Suspect]
     Active Substance: TACROLIMUS
     Indication: RENAL TRANSPLANT
     Dosage: 3.5 MG, QD
     Route: 048
     Dates: start: 20150907, end: 20160112

REACTIONS (1)
  - Skin maceration [Recovered/Resolved]

NARRATIVE: CASE EVENT DATE: 20160112
